FAERS Safety Report 8736292 (Version 2)
Quarter: 2012Q4

REPORT INFORMATION
  Report Type: 
  Country: IL (occurrence: IL)
  Receive Date: 20120822
  Receipt Date: 20120828
  Transmission Date: 20130627
  Serious: Yes (Other)
  Sender: FDA-Public Use
  Company Number: PHHY2012IL070730

PATIENT
  Age: 68 Year
  Sex: Female

DRUGS (1)
  1. ALENDRONIC ACID [Suspect]
     Dosage: 70 mg, per week
     Route: 048

REACTIONS (12)
  - Trigeminal neuralgia [Unknown]
  - Osteonecrosis of jaw [Unknown]
  - Paraesthesia [Unknown]
  - Hypoaesthesia [Recovered/Resolved]
  - Pain in jaw [Recovered/Resolved]
  - Gingival swelling [Unknown]
  - Gingival erythema [Unknown]
  - Swelling [Unknown]
  - Burning sensation [Unknown]
  - Pain [Unknown]
  - Myalgia [Unknown]
  - Lymphadenopathy [None]
